FAERS Safety Report 25273704 (Version 1)
Quarter: 2025Q2

REPORT INFORMATION
  Report Type: Spontaneous
  Country: US (occurrence: US)
  Receive Date: 20250506
  Receipt Date: 20250506
  Transmission Date: 20250716
  Serious: No
  Sender: LEXICON PHARMACEUTICALS
  Company Number: US-LEX-000733

PATIENT
  Sex: Male

DRUGS (1)
  1. INPEFA [Suspect]
     Active Substance: SOTAGLIFLOZIN
     Indication: Product used for unknown indication
     Route: 048
     Dates: start: 20241123

REACTIONS (2)
  - Oedema peripheral [Unknown]
  - Bowel movement irregularity [Unknown]
